FAERS Safety Report 21827090 (Version 2)
Quarter: 2023Q1

REPORT INFORMATION
  Report Type: Report from Study
  Country: US (occurrence: US)
  Receive Date: 20230106
  Receipt Date: 20230112
  Transmission Date: 20230417
  Serious: No
  Sender: FDA-Public Use
  Company Number: US-002147023-NVSC2023US002285

PATIENT
  Sex: Female

DRUGS (1)
  1. ILARIS [Suspect]
     Active Substance: CANAKINUMAB
     Indication: Still^s disease
     Dosage: 90 MG, Q4W
     Route: 058
     Dates: start: 20220715, end: 20221105

REACTIONS (4)
  - Dysphonia [Unknown]
  - Cough [Unknown]
  - Rhinorrhoea [Unknown]
  - Rash [Unknown]
